FAERS Safety Report 5629506-4 (Version None)
Quarter: 2008Q1

REPORT INFORMATION
  Report Type: 
  Country: None (occurrence: None)
  Receive Date: 20080214
  Receipt Date: 20080214
  Transmission Date: 20080703
  Serious: Yes (Other)
  Sender: FDA-Public Use
  Company Number: None

PATIENT
  Age: 64 Year
  Sex: Female

DRUGS (1)
  1. ZOCOR [Suspect]
     Dates: start: 20020101

REACTIONS (1)
  - AMYOTROPHIC LATERAL SCLEROSIS [None]
